FAERS Safety Report 7493435-4 (Version None)
Quarter: 2011Q2

REPORT INFORMATION
  Report Type: 
  Country: None (occurrence: None)
  Receive Date: 20110519
  Receipt Date: 20110519
  Transmission Date: 20111010
  Serious: Yes (Other)
  Sender: FDA-Public Use
  Company Number: None

PATIENT
  Sex: Female
  Weight: 58.0604 kg

DRUGS (4)
  1. COMPAZINE [Suspect]
     Indication: NAUSEA
     Dosage: 10MG   19, 24, 26, 27
     Dates: start: 20110324
  2. COMPAZINE [Suspect]
     Indication: NAUSEA
     Dosage: 10MG   19, 24, 26, 27
     Dates: start: 20110326
  3. COMPAZINE [Suspect]
     Indication: NAUSEA
     Dosage: 10MG   19, 24, 26, 27
     Dates: start: 20110319
  4. COMPAZINE [Suspect]
     Indication: NAUSEA
     Dosage: 10MG   19, 24, 26, 27
     Dates: start: 20110327

REACTIONS (8)
  - DIZZINESS [None]
  - CHEST PAIN [None]
  - RASH [None]
  - NAUSEA [None]
  - HYPOAESTHESIA [None]
  - EYE PAIN [None]
  - HYPOAESTHESIA FACIAL [None]
  - CARDIAC DISORDER [None]
